FAERS Safety Report 14847814 (Version 1)
Quarter: 2018Q2

REPORT INFORMATION
  Report Type: Spontaneous
  Country: US (occurrence: US)
  Receive Date: 20180504
  Receipt Date: 20180504
  Transmission Date: 20180711
  Serious: No
  Sender: FDA-Public Use
  Company Number: US-GLAXOSMITHKLINE-US2018073790

PATIENT
  Age: 46 Year
  Sex: Female

DRUGS (1)
  1. FLONASE [Suspect]
     Active Substance: FLUTICASONE PROPIONATE
     Indication: SINUS DISORDER
     Dosage: UNK
     Dates: start: 20180324

REACTIONS (4)
  - Ageusia [Recovering/Resolving]
  - Expired product administered [Recovering/Resolving]
  - Anosmia [Recovering/Resolving]
  - Product use in unapproved indication [Recovering/Resolving]

NARRATIVE: CASE EVENT DATE: 20180430
